FAERS Safety Report 9845216 (Version 1)
Quarter: 2014Q1

REPORT INFORMATION
  Report Type: Spontaneous
  Country: FR (occurrence: None)
  Receive Date: 20140122
  Receipt Date: 20140122
  Transmission Date: 20141002
  Serious: Yes (Hospitalization)
  Sender: FDA-Public Use
  Company Number: TPU2014-00016

PATIENT
  Age: 14 Year
  Sex: Male

DRUGS (4)
  1. VERSATIS [Suspect]
     Indication: COMPLEX REGIONAL PAIN SYNDROME
     Dosage: 4 PLASTER, 2 IN 1 D, TOPICAL
     Dates: start: 2011
  2. IXPRIM [Suspect]
     Indication: COMPLEX REGIONAL PAIN SYNDROME
     Dosage: 9 DOSAGE FORMS, 3 IN 1 D
     Dates: start: 2011
  3. LAROXYL [Suspect]
     Indication: COMPLEX REGIONAL PAIN SYNDROME
     Dosage: 10 GTT, 1 IN 1 D
     Dates: start: 2011, end: 201309
  4. LAROXYL [Suspect]
     Indication: MIGRAINE
     Dosage: 10 GTT, 1 IN 1 D
     Dates: start: 2011, end: 201309

REACTIONS (7)
  - Migraine [None]
  - Grand mal convulsion [None]
  - Medication error [None]
  - Off label use [None]
  - Off label use [None]
  - Circadian rhythm sleep disorder [None]
  - Incorrect dose administered [None]
